FAERS Safety Report 5185760-7 (Version None)
Quarter: 2006Q4

REPORT INFORMATION
  Report Type: 
  Country: None (occurrence: None)
  Receive Date: 20061220
  Receipt Date: 20030616
  Transmission Date: 20070319
  Serious: Yes (Life-Threatening, Hospitalization)
  Sender: FDA-Public Use
  Company Number: US-BRISTOL-MYERS SQUIBB COMPANY-12302733

PATIENT
  Age: 48 Year
  Sex: Male

DRUGS (9)
  1. METOPROLOL TARTRATE [Suspect]
     Indication: ATRIAL FIBRILLATION
     Route: 048
  2. ACETAMINOPHEN [Suspect]
     Indication: UMBILICAL HERNIA REPAIR
     Dosage: DOSAGE: 1 TOTAL
  3. PROPOXYPHENE NAPSYLATE [Suspect]
     Indication: UMBILICAL HERNIA
     Route: 048
  4. DILTIAZEM HCL [Concomitant]
  5. ATORVASTATIN [Concomitant]
     Indication: HYPERLIPIDAEMIA
  6. LEVOTHYROXINE SODIUM [Concomitant]
     Indication: HYPOTHYROIDISM
  7. FOSINOPRIL SODIUM [Concomitant]
     Indication: HYPERTENSION
  8. AMITRIPTYLINE HCL [Concomitant]
     Indication: SLEEP DISORDER
  9. WARFARIN SODIUM [Concomitant]

REACTIONS (3)
  - BRADYCARDIA [None]
  - DRUG INTERACTION [None]
  - HYPOTENSION [None]
